FAERS Safety Report 10470838 (Version 5)
Quarter: 2015Q1

REPORT INFORMATION
  Report Type: Spontaneous
  Country: US (occurrence: US)
  Receive Date: 20140923
  Receipt Date: 20150109
  Transmission Date: 20150720
  Serious: Yes (Life-Threatening, Hospitalization, Other)
  Sender: FDA-Public Use
  Company Number: US-009507513-1409USA010612

PATIENT
  Sex: Female
  Weight: 68.27 kg

DRUGS (17)
  1. DELTASONE [Concomitant]
     Active Substance: PREDNISONE
     Dosage: 10 MG, QD
     Route: 048
  2. DELTASONE [Concomitant]
     Active Substance: PREDNISONE
     Dosage: 10 MG, QOD
     Route: 048
  3. MYCOSTATIN [Concomitant]
     Active Substance: NYSTATIN
     Dosage: 100,000, 5ML, QID
     Route: 048
  4. COMBIVENT [Concomitant]
     Active Substance: ALBUTEROL SULFATE\IPRATROPIUM BROMIDE
     Dosage: 18-103 MCG 2-3 PUFFS, QID
     Route: 048
  5. NEURONTIN [Concomitant]
     Active Substance: GABAPENTIN
     Dosage: 1200 MG, QD
     Route: 048
  6. ZANAFLEX [Concomitant]
     Active Substance: TIZANIDINE HYDROCHLORIDE
     Indication: MUSCLE SPASMS
     Dosage: 2-6 MG Q8H PRN
     Route: 048
  7. VYTORIN [Concomitant]
     Active Substance: EZETIMIBE\SIMVASTATIN
     Dosage: 10-40 MG, HS
     Route: 048
  8. MAGNESIUM (UNSPECIFIED) [Concomitant]
     Active Substance: MAGNESIUM
     Dosage: 250 MG, QD
     Route: 048
  9. FLEXERIL [Concomitant]
     Active Substance: CYCLOBENZAPRINE HYDROCHLORIDE
     Indication: MUSCLE SPASMS
     Dosage: 10 MG, TID
     Route: 048
  10. ALBUTEROL (+) IPRATROPIUM BROMIDE [Concomitant]
     Dosage: 0.5-2.5MG, 3 ML, Q6H PRN
     Route: 048
  11. ZINC (UNSPECIFIED) [Concomitant]
     Dosage: 50 MG, QD
     Route: 048
  12. PURE ENCAPSULATIONS GLUCOSAMINE COMPLEX [Concomitant]
     Dosage: 1500 DF, BID
     Route: 048
  13. K-DUR [Concomitant]
     Active Substance: POTASSIUM CHLORIDE
     Indication: MUSCLE SPASMS
     Dosage: 20 MEQ, QD
     Route: 048
  14. JANUMET [Suspect]
     Active Substance: METFORMIN HYDROCHLORIDE\SITAGLIPTIN PHOSPHATE
     Indication: TYPE 2 DIABETES MELLITUS
     Dosage: 50-1000 MG, BID
     Route: 048
     Dates: start: 20101019, end: 20120214
  15. ERGOCALCIFEROL. [Concomitant]
     Active Substance: ERGOCALCIFEROL
     Dosage: 50000 UNITS, Q7D
     Route: 048
  16. FOLBIC [Concomitant]
     Active Substance: CYANOCOBALAMIN\FOLIC ACID\PYRIDOXINE
     Dosage: 2.5-25-2 MG, QD
     Route: 048
  17. OMEGA-3 MARINE TRIGLYCERIDES (+) VITAMIN E [Concomitant]
     Dosage: 2000 MG, QD
     Route: 048

REACTIONS (63)
  - Arthritis [Unknown]
  - Anxiety [Unknown]
  - Osteoarthritis [Unknown]
  - Iron deficiency anaemia [Unknown]
  - Ureteral stent insertion [Unknown]
  - Pancreatic carcinoma metastatic [Unknown]
  - Nephrolithiasis [Unknown]
  - Pancreatic insufficiency [Unknown]
  - Large intestine polyp [Unknown]
  - Endocrine disorder [Unknown]
  - Neuropathy peripheral [Unknown]
  - Glaucoma [Unknown]
  - Osteopenia [Unknown]
  - Pancreatitis [Unknown]
  - Blood triglycerides increased [Recovered/Resolved]
  - Hepatic calcification [Unknown]
  - Asthma [Unknown]
  - Carpal tunnel decompression [Unknown]
  - Neurorrhaphy [Unknown]
  - Oral candidiasis [Unknown]
  - Vitamin D deficiency [Unknown]
  - Drug ineffective [Unknown]
  - Renal stone removal [Unknown]
  - Renal stone removal [Unknown]
  - Clostridium difficile infection [Unknown]
  - Pulmonary fibrosis [Unknown]
  - Aortic arteriosclerosis [Unknown]
  - Intestinal dilatation [Unknown]
  - Varicose vein [Unknown]
  - Malabsorption [Unknown]
  - Hepatic steatosis [Unknown]
  - Jugular vein thrombosis [Unknown]
  - Coronary artery disease [Unknown]
  - Peptic ulcer [Unknown]
  - Psoriasis [Unknown]
  - Renal stone removal [Unknown]
  - Renal cyst [Unknown]
  - Nephrolithiasis [Unknown]
  - Pleural fibrosis [Unknown]
  - Gastrooesophageal reflux disease [Unknown]
  - Depression [Unknown]
  - Pulmonary mass [Unknown]
  - Back pain [Unknown]
  - Nephrolithiasis [Unknown]
  - Spinal disorder [Unknown]
  - Pneumonia [Unknown]
  - Nephrolithiasis [Recovered/Resolved]
  - Tumour invasion [Unknown]
  - Lung neoplasm [Unknown]
  - Emphysema [Unknown]
  - Pulmonary mass [Unknown]
  - Renal disorder [Unknown]
  - Osteotomy [Unknown]
  - Pulmonary hypertension [Unknown]
  - Constipation [Unknown]
  - Hip arthroplasty [Unknown]
  - Jugular vein thrombosis [Recovered/Resolved]
  - Pancreatitis acute [Not Recovered/Not Resolved]
  - Periportal oedema [Unknown]
  - Injection site granuloma [Unknown]
  - Pancreatic insufficiency [Unknown]
  - Abdominal pain [Recovered/Resolved]
  - Oesophageal dilatation [Unknown]

NARRATIVE: CASE EVENT DATE: 20101104
